FAERS Safety Report 7081167-6 (Version None)
Quarter: 2010Q4

REPORT INFORMATION
  Report Type: 
  Country: None (occurrence: None)
  Receive Date: 20101103
  Receipt Date: 20101026
  Transmission Date: 20110411
  Serious: Yes (Hospitalization, Other)
  Sender: FDA-Public Use
  Company Number: D0069111A

PATIENT
  Sex: Male
  Weight: 15.5 kg

DRUGS (2)
  1. LAMOTRIGINE [Suspect]
     Indication: CONVULSION
     Dosage: 10MG TWICE PER DAY
     Route: 048
  2. KEPPRA [Suspect]
     Dosage: 400MG TWICE PER DAY
     Route: 048
     Dates: start: 20090628, end: 20100131

REACTIONS (6)
  - ANTICONVULSANT DRUG LEVEL ABNORMAL [None]
  - CONDITION AGGRAVATED [None]
  - CONVULSION [None]
  - DRUG EFFECT DECREASED [None]
  - IRRITABILITY [None]
  - RASH PUSTULAR [None]
